FAERS Safety Report 16810653 (Version 2)
Quarter: 2019Q4

REPORT INFORMATION
  Report Type: Spontaneous
  Country: SI (occurrence: SI)
  Receive Date: 20190916
  Receipt Date: 20191114
  Transmission Date: 20200122
  Serious: Yes (Other)
  Sender: FDA-Public Use
  Company Number: SI-MYLANLABS-2019M1085611

PATIENT
  Age: 70 Year

DRUGS (18)
  1. CETUXIMAB. [Suspect]
     Active Substance: CETUXIMAB
     Indication: INTESTINAL METASTASIS
     Dosage: UNK
  2. AVASTIN                            /00848101/ [Concomitant]
     Active Substance: SIMVASTATIN
     Indication: ADENOCARCINOMA OF COLON
     Dosage: UNK
     Dates: start: 2012, end: 201207
  3. FLUOROURACIL. [Suspect]
     Active Substance: FLUOROURACIL
     Indication: INTESTINAL METASTASIS
     Dosage: UNK
     Dates: start: 201702
  4. XELODA [Concomitant]
     Active Substance: CAPECITABINE
     Dosage: UNK
     Route: 065
  5. PANITUMUMAB [Suspect]
     Active Substance: PANITUMUMAB
     Indication: ADENOCARCINOMA OF COLON
     Dosage: UNK
     Route: 065
     Dates: start: 20111123, end: 20171011
  6. STIVARGA [Suspect]
     Active Substance: REGORAFENIB
     Indication: PRODUCT USED FOR UNKNOWN INDICATION
     Dosage: UNK
     Route: 065
  7. IRINOTECAN [Suspect]
     Active Substance: IRINOTECAN
     Indication: ADENOCARCINOMA OF COLON
     Dosage: UNK
     Route: 065
     Dates: start: 20111123
  8. CETUXIMAB. [Suspect]
     Active Substance: CETUXIMAB
     Indication: METASTASES TO LUNG
     Dosage: UNK
     Route: 065
     Dates: start: 201702
  9. FLUOROURACIL. [Suspect]
     Active Substance: FLUOROURACIL
     Indication: METASTASES TO LUNG
     Dosage: UNK
     Route: 065
     Dates: start: 201005, end: 201012
  10. FOLINIC ACID [Suspect]
     Active Substance: LEUCOVORIN
     Indication: METASTASES TO LUNG
     Dosage: UNK
     Dates: start: 201005, end: 201012
  11. IRINOTECAN [Suspect]
     Active Substance: IRINOTECAN
     Indication: INTESTINAL METASTASIS
     Dosage: UNK
  12. FOLINIC ACID [Suspect]
     Active Substance: LEUCOVORIN
     Indication: INTESTINAL METASTASIS
     Dosage: UNK
     Route: 065
     Dates: start: 201702
  13. OXALIPLATIN. [Suspect]
     Active Substance: OXALIPLATIN
     Indication: ADENOCARCINOMA OF COLON
     Dosage: UNK
     Route: 065
     Dates: start: 201005
  14. IRINOTECAN [Suspect]
     Active Substance: IRINOTECAN
     Indication: METASTASES TO LUNG
     Dosage: UNK
  15. CAPECITABINE. [Suspect]
     Active Substance: CAPECITABINE
     Indication: ADENOCARCINOMA OF COLON
     Dosage: UNK
     Route: 065
     Dates: start: 20111123
  16. FILGRASTIM [Suspect]
     Active Substance: FILGRASTIM
     Indication: NEUTROPENIA
     Dosage: UNK
     Route: 065
  17. XELODA [Concomitant]
     Active Substance: CAPECITABINE
     Indication: ADENOCARCINOMA OF COLON
     Dosage: UNK
     Route: 065
     Dates: start: 2012, end: 201207
  18. BEVACIZUMAB. [Suspect]
     Active Substance: BEVACIZUMAB
     Indication: PRODUCT USED FOR UNKNOWN INDICATION
     Dosage: UNK
     Route: 065

REACTIONS (21)
  - Muscle spasms [Unknown]
  - Unevaluable event [Unknown]
  - Administration site extravasation [Unknown]
  - Stomatitis [Unknown]
  - Intestinal metastasis [Recovered/Resolved]
  - Paronychia [Unknown]
  - Urticaria [Unknown]
  - Hypertension [Not Recovered/Not Resolved]
  - Skin ulcer [Unknown]
  - Chest pain [Unknown]
  - Inflammation [Unknown]
  - Neutropenia [Unknown]
  - Metastases to liver [Unknown]
  - Diarrhoea [Unknown]
  - Hypersensitivity [Unknown]
  - Dysphonia [Unknown]
  - Pulmonary embolism [Unknown]
  - Hypomagnesaemia [Unknown]
  - Metastases to lung [Recovered/Resolved]
  - Epistaxis [Unknown]
  - Infusion related reaction [Unknown]

NARRATIVE: CASE EVENT DATE: 20150201
